FAERS Safety Report 5380973-3 (Version None)
Quarter: 2007Q3

REPORT INFORMATION
  Report Type: 
  Country: None (occurrence: None)
  Receive Date: 20070706
  Receipt Date: 20070703
  Transmission Date: 20080115
  Serious: Yes (Hospitalization)
  Sender: FDA-Public Use
  Company Number: JP-SANOFI-SYNTHELABO-F01200700829

PATIENT
  Sex: Female
  Weight: 52.5 kg

DRUGS (19)
  1. CATACLOT [Suspect]
     Dosage: 160 MG
     Route: 042
     Dates: start: 20070206, end: 20070214
  2. LEVOFLOXACIN [Concomitant]
     Dosage: 300 MG
     Route: 048
     Dates: start: 20070326, end: 20070330
  3. FOIPAN [Concomitant]
     Dosage: 1 TABLET
     Route: 048
     Dates: start: 20070302, end: 20070406
  4. TAKEPRON [Concomitant]
     Dosage: 30 MG
     Route: 048
     Dates: start: 20070225, end: 20070421
  5. ALEVIATIN [Concomitant]
     Dosage: 2.5 G
     Route: 048
     Dates: start: 20070222, end: 20070507
  6. MEILAX [Concomitant]
     Dosage: 1 MG
     Route: 048
     Dates: start: 20070209, end: 20070216
  7. KENTAN [Concomitant]
     Dosage: 3 TABLETS
     Route: 048
     Dates: start: 20070209, end: 20070216
  8. CRESTOR [Concomitant]
     Indication: HYPERLIPIDAEMIA
     Dosage: 2.5 MG
     Route: 048
     Dates: start: 20070302, end: 20070507
  9. LIPITOR [Concomitant]
     Indication: HYPERLIPIDAEMIA
     Dosage: 10 MG
     Route: 048
     Dates: start: 20070206, end: 20070216
  10. PREMINENT [Concomitant]
     Indication: HYPERTENSION
     Dosage: 1 TABLET
     Route: 048
     Dates: start: 20070227, end: 20070507
  11. MICARDIS [Concomitant]
     Indication: HYPERTENSION
     Dosage: 40 MG
     Route: 048
     Dates: start: 20070221, end: 20070222
  12. MICARDIS [Concomitant]
     Dosage: 80 MG
     Route: 048
     Dates: start: 20070222, end: 20070507
  13. ALLOTOP L [Concomitant]
     Indication: HYPERTENSION
     Dosage: 40 MG
     Route: 048
     Dates: start: 20070209, end: 20070216
  14. LENIMEC [Concomitant]
     Indication: HYPERTENSION
     Dosage: 5 MG
     Route: 048
     Dates: start: 20070209, end: 20070216
  15. RADICUT [Suspect]
     Dosage: 60 MG
     Route: 042
     Dates: start: 20070206, end: 20070212
  16. SIGMART [Concomitant]
     Dosage: 15 MG
     Route: 048
     Dates: start: 20070304, end: 20070507
  17. NORVASC [Concomitant]
     Indication: HYPERTENSION
     Dosage: 5 MG
     Route: 048
     Dates: start: 20070223, end: 20070507
  18. CLOPIDOGREL [Suspect]
     Indication: CEREBRAL ISCHAEMIA
     Route: 048
     Dates: start: 20070209, end: 20070215
  19. CLOPIDOGREL [Suspect]
     Route: 048
     Dates: start: 20070330, end: 20070507

REACTIONS (2)
  - ANAEMIA [None]
  - RENAL IMPAIRMENT [None]
